FAERS Safety Report 14458434 (Version 1)
Quarter: 2018Q1

REPORT INFORMATION
  Report Type: Spontaneous
  Country: KR (occurrence: KR)
  Receive Date: 20180130
  Receipt Date: 20180130
  Transmission Date: 20180509
  Serious: Yes (Other)
  Sender: FDA-Public Use
  Company Number: KR-ASTRAZENECA-2018SE09993

PATIENT
  Age: 60 Year
  Sex: Male

DRUGS (3)
  1. TAGRISSO [Suspect]
     Active Substance: OSIMERTINIB
     Indication: NON-SMALL CELL LUNG CANCER
     Route: 048
     Dates: start: 201607
  2. TARGIN PR [Concomitant]
  3. SYNATURA [Concomitant]

REACTIONS (7)
  - Chest pain [Unknown]
  - Dyspnoea [Unknown]
  - Neoplasm progression [Unknown]
  - Back pain [Unknown]
  - Paronychia [Unknown]
  - Rash [Recovering/Resolving]
  - Chest discomfort [Not Recovered/Not Resolved]
